FAERS Safety Report 7808118-8 (Version None)
Quarter: 2011Q4

REPORT INFORMATION
  Report Type: 
  Country: None (occurrence: None)
  Receive Date: 20111011
  Receipt Date: 20110927
  Transmission Date: 20120403
  Serious: Yes (Hospitalization, Other)
  Sender: FDA-Public Use
  Company Number: DE-ROCHE-804138

PATIENT
  Sex: Male

DRUGS (2)
  1. BENDAMUSTINA [Concomitant]
     Indication: B-CELL LYMPHOMA
  2. RITUXIMAB [Suspect]
     Indication: B-CELL LYMPHOMA
     Route: 065

REACTIONS (2)
  - CEREBROVASCULAR ACCIDENT [None]
  - CHYLOTHORAX [None]
